FAERS Safety Report 9056995 (Version 1)
Quarter: 2013Q1

REPORT INFORMATION
  Report Type: Report from Study
  Country: US (occurrence: US)
  Receive Date: 20130131
  Receipt Date: 20130131
  Transmission Date: 20140127
  Serious: No
  Sender: FDA-Public Use
  Company Number: US-ABBOTT-12P-163-0990175-00

PATIENT
  Age: 46 None
  Sex: Female
  Weight: 113.5 kg

DRUGS (9)
  1. HUMIRA [Suspect]
     Indication: CROHN^S DISEASE
     Dates: start: 20121001, end: 20121001
  2. NOVOLOG INSULIN [Concomitant]
     Indication: DIABETES MELLITUS
  3. ASACOL [Concomitant]
     Indication: CROHN^S DISEASE
  4. BENICAR [Concomitant]
     Indication: HYPERTENSION
  5. TRICOR [Concomitant]
     Indication: BLOOD CHOLESTEROL INCREASED
  6. VITAMIN D [Concomitant]
     Indication: CROHN^S DISEASE
  7. MULTIVITAMIN [Concomitant]
     Indication: VITAMIN SUPPLEMENTATION
  8. PREDNISONE [Concomitant]
     Indication: CROHN^S DISEASE
  9. LANTUS INSULIN [Concomitant]
     Indication: DIABETES MELLITUS

REACTIONS (1)
  - Injection site pain [Recovered/Resolved]
